FAERS Safety Report 22191021 (Version 1)
Quarter: 2023Q2

REPORT INFORMATION
  Report Type: Spontaneous
  Country: US (occurrence: None)
  Receive Date: 20230405
  Receipt Date: 20230405
  Transmission Date: 20230722
  Serious: No
  Sender: FDA-Public Use
  Company Number: None

PATIENT
  Sex: Female

DRUGS (1)
  1. FORTEO [Suspect]
     Active Substance: TERIPARATIDE
     Dosage: 20MCG DAILY SUBCUTANEOUS?
     Route: 058

REACTIONS (3)
  - Pain [None]
  - Headache [None]
  - Therapy cessation [None]
